FAERS Safety Report 5967636-8 (Version None)
Quarter: 2008Q4

REPORT INFORMATION
  Report Type: 
  Country: None (occurrence: None)
  Receive Date: 20081126
  Receipt Date: 20081117
  Transmission Date: 20090506
  Serious: Yes (Hospitalization)
  Sender: FDA-Public Use
  Company Number: PHHY2008FR29022

PATIENT
  Sex: Female

DRUGS (5)
  1. SYNTOCINON [Suspect]
     Dosage: UNK
     Dates: start: 20080818
  2. CEFAZOLIN [Suspect]
     Dosage: UNK
     Dates: start: 20080818
  3. PERFALGAN [Suspect]
     Dosage: UNK
     Dates: start: 20080818
  4. TOPALGIC [Suspect]
     Dosage: UNK
     Dates: start: 20080818
  5. PROFENID [Suspect]
     Dosage: UNK
     Dates: start: 20080818

REACTIONS (5)
  - ANAPHYLACTOID REACTION [None]
  - EYELID OEDEMA [None]
  - LATEX ALLERGY [None]
  - LIP OEDEMA [None]
  - URTICARIA [None]
